FAERS Safety Report 17522317 (Version 2)
Quarter: 2020Q1

REPORT INFORMATION
  Report Type: Spontaneous
  Country: DE (occurrence: DE)
  Receive Date: 20200310
  Receipt Date: 20200312
  Transmission Date: 20200409
  Serious: Yes (Hospitalization, Other)
  Sender: FDA-Public Use
  Company Number: DE-PFIZER INC-2020099431

PATIENT

DRUGS (1)
  1. CYTOTEC [Suspect]
     Active Substance: MISOPROSTOL
     Indication: LABOUR INDUCTION
     Dosage: UNK
     Route: 064
     Dates: start: 20180903, end: 20180903

REACTIONS (4)
  - Neonatal behavioural syndrome [Unknown]
  - Vital functions abnormal [Unknown]
  - Foetal heart rate decreased [Unknown]
  - Foetal exposure during pregnancy [Unknown]

NARRATIVE: CASE EVENT DATE: 20180903
